FAERS Safety Report 5572433-1 (Version None)
Quarter: 2007Q4

REPORT INFORMATION
  Report Type: 
  Country: None (occurrence: None)
  Receive Date: 20071219
  Receipt Date: 20071206
  Transmission Date: 20080405
  Serious: Yes (Hospitalization)
  Sender: FDA-Public Use
  Company Number: IL-JNJFOC-20071109275

PATIENT
  Age: 77 Year

DRUGS (2)
  1. DECITABINE (DECITABINE) LYOPHILIZED POWDER [Suspect]
     Indication: MYELODYSPLASTIC SYNDROME
     Dosage: 30 MG, INTRAVENOUS
     Route: 042
     Dates: start: 20071113, end: 20071117
  2. GLUCOPHAGE [Concomitant]

REACTIONS (5)
  - CONFUSIONAL STATE [None]
  - HAEMATOMA [None]
  - HAEMORRHAGE INTRACRANIAL [None]
  - SUBDURAL HAEMATOMA [None]
  - VOMITING [None]
